FAERS Safety Report 7298977-2 (Version None)
Quarter: 2011Q1

REPORT INFORMATION
  Report Type: 
  Country: None (occurrence: None)
  Receive Date: 20110217
  Receipt Date: 20110208
  Transmission Date: 20110831
  Serious: Yes (Other)
  Sender: FDA-Public Use
  Company Number: US-JNJFOC-20110204182

PATIENT
  Age: 37 Year
  Sex: Female

DRUGS (3)
  1. USTEKINUMAB [Suspect]
     Indication: PSORIASIS
     Route: 058
  2. USTEKINUMAB [Suspect]
     Route: 058
  3. USTEKINUMAB [Suspect]
     Route: 058

REACTIONS (1)
  - PSORIASIS [None]
